FAERS Safety Report 4840592-1 (Version None)
Quarter: 2005Q4

REPORT INFORMATION
  Report Type: 
  Country: None (occurrence: None)
  Receive Date: 20051129
  Receipt Date: 20051129
  Transmission Date: 20060501
  Serious: Yes (Life-Threatening)
  Sender: FDA-Public Use
  Company Number: None

PATIENT
  Sex: Male
  Weight: 80 kg

DRUGS (2)
  1. COUMADIN [Suspect]
     Indication: DEEP VEIN THROMBOSIS
     Dosage: 3 MG QD
  2. COUMADIN [Suspect]
     Indication: PULMONARY EMBOLISM
     Dosage: 3 MG QD

REACTIONS (1)
  - SUBDURAL HAEMATOMA [None]
